FAERS Safety Report 18414467 (Version 1)
Quarter: 2020Q4

REPORT INFORMATION
  Report Type: Spontaneous
  Country: US (occurrence: US)
  Receive Date: 20201021
  Receipt Date: 20201021
  Transmission Date: 20210114
  Serious: Yes (Other)
  Sender: FDA-Public Use
  Company Number: None

PATIENT
  Age: 79 Year
  Sex: Female
  Weight: 68.4 kg

DRUGS (5)
  1. METFORMIN 500MG [Concomitant]
     Active Substance: METFORMIN HYDROCHLORIDE
  2. TERBINAFINE 250MG [Concomitant]
     Active Substance: TERBINAFINE
  3. PIQRAY [Suspect]
     Active Substance: ALPELISIB
     Indication: BREAST CANCER FEMALE
     Route: 048
  4. LOSARTAN 50MG [Concomitant]
     Active Substance: LOSARTAN
  5. SIMVASTATIN 40MG [Concomitant]
     Active Substance: SIMVASTATIN

REACTIONS (2)
  - Diarrhoea [None]
  - Hypotension [None]

NARRATIVE: CASE EVENT DATE: 20201006
